FAERS Safety Report 4618839-6 (Version None)
Quarter: 2005Q1

REPORT INFORMATION
  Report Type: 
  Country: None (occurrence: None)
  Receive Date: 20050323
  Receipt Date: 20050303
  Transmission Date: 20050727
  Serious: No
  Sender: FDA-Public Use
  Company Number: USA050392502

PATIENT
  Age: 11 Year
  Sex: Male

DRUGS (2)
  1. STRATTERA (ATOMOXETINE HYDROCHLOIRIDE) [Suspect]
     Dates: start: 20030701
  2. WELLBUTRIN SR [Concomitant]

REACTIONS (2)
  - ALANINE AMINOTRANSFERASE INCREASED [None]
  - ASPARTATE AMINOTRANSFERASE INCREASED [None]
